FAERS Safety Report 7521613-4 (Version None)
Quarter: 2011Q2

REPORT INFORMATION
  Report Type: 
  Country: None (occurrence: None)
  Receive Date: 20110524
  Receipt Date: 20110510
  Transmission Date: 20111010
  Serious: Yes (Hospitalization)
  Sender: FDA-Public Use
  Company Number: CIP11000551

PATIENT
  Age: 70 Year
  Sex: Female
  Weight: 56.7 kg

DRUGS (13)
  1. BENICAR [Concomitant]
  2. LISINOPRIL [Concomitant]
  3. DICYCLOMINE /00068601/(DICYCLOVERINE) [Concomitant]
  4. BONIVA [Suspect]
     Indication: OSTEOPOROSIS
     Dosage: 150 MG ONCE MONTHLY, ORAL
     Route: 048
     Dates: start: 20070116
  5. DETROL LA [Concomitant]
  6. ACTONEL [Suspect]
     Indication: OSTEOPOROSIS
     Dosage: 35 MG ONCE WEEKLY, ORAL
     Route: 048
     Dates: start: 20051115, end: 20060209
  7. FOSAMAX [Suspect]
     Indication: OSTEOPOROSIS
     Dosage: 70 MG ONCE WEEKLY, ORAL
     Route: 048
     Dates: start: 20040626, end: 20051014
  8. LOVASTATIN [Concomitant]
  9. PREVACID [Concomitant]
  10. LEVOTHYROXINE SODIUM [Concomitant]
  11. ALBUTEROL [Concomitant]
  12. FLUOXETINE [Concomitant]
  13. RANITIDE (RANITIDINE) [Concomitant]

REACTIONS (24)
  - WEIGHT BEARING DIFFICULTY [None]
  - OEDEMA PERIPHERAL [None]
  - CELLULITIS [None]
  - IMPAIRED HEALING [None]
  - HYPONATRAEMIA [None]
  - PAIN IN EXTREMITY [None]
  - FRACTURE NONUNION [None]
  - FEMUR FRACTURE [None]
  - CARDIAC FAILURE CONGESTIVE [None]
  - ECCHYMOSIS [None]
  - OSTEOMYELITIS [None]
  - GINGIVAL PAIN [None]
  - GINGIVITIS [None]
  - JAW FRACTURE [None]
  - SWELLING FACE [None]
  - DECUBITUS ULCER [None]
  - SCIATICA [None]
  - NEURITIS [None]
  - ORAL CANDIDIASIS [None]
  - PAIN IN JAW [None]
  - OEDEMA MOUTH [None]
  - FALL [None]
  - DYSPHAGIA [None]
  - WOUND NECROSIS [None]
